FAERS Safety Report 4559054-4 (Version None)
Quarter: 2005Q1

REPORT INFORMATION
  Report Type: 
  Country: None (occurrence: None)
  Receive Date: 20050124
  Receipt Date: 20050110
  Transmission Date: 20050727
  Serious: Yes (Hospitalization)
  Sender: FDA-Public Use
  Company Number: IT-JNJFOC-20041207576

PATIENT
  Sex: Female

DRUGS (4)
  1. REMICADE [Suspect]
     Indication: RHEUMATOID ARTHRITIS
     Route: 042
  2. METHOTREXATE [Suspect]
     Indication: RHEUMATOID ARTHRITIS
     Route: 049
  3. MEDROL [Suspect]
     Indication: RHEUMATOID ARTHRITIS
     Route: 049
  4. NIMESULIDE [Concomitant]

REACTIONS (2)
  - BRAIN ABSCESS [None]
  - MENINGITIS LISTERIA [None]
